FAERS Safety Report 16230099 (Version 2)
Quarter: 2019Q2

REPORT INFORMATION
  Report Type: Spontaneous
  Country: US (occurrence: US)
  Receive Date: 20190423
  Receipt Date: 20190522
  Transmission Date: 20190711
  Serious: No
  Sender: FDA-Public Use
  Company Number: US-BAUSCH-BL-2019-010909

PATIENT
  Age: 69 Year
  Sex: Male
  Weight: 97.61 kg

DRUGS (2)
  1. LISINOPRIL. [Concomitant]
     Active Substance: LISINOPRIL
     Indication: HYPERTENSION
     Dosage: STARTED OVER 10 YEARS AGO
     Route: 048
  2. DEXAMETHASONE SODIUM PHOSPHATE OPHTHALMIC SOLUTION USP 0.1% [Suspect]
     Active Substance: DEXAMETHASONE SODIUM PHOSPHATE
     Indication: POSTOPERATIVE CARE
     Dosage: RIGHT EYE
     Route: 047
     Dates: start: 20190403

REACTIONS (3)
  - Eye pain [Not Recovered/Not Resolved]
  - Vision blurred [Not Recovered/Not Resolved]
  - Inappropriate schedule of product administration [Unknown]

NARRATIVE: CASE EVENT DATE: 20190403
